FAERS Safety Report 6956964-5 (Version None)
Quarter: 2010Q3

REPORT INFORMATION
  Report Type: 
  Country: None (occurrence: None)
  Receive Date: 20100827
  Receipt Date: 20100827
  Transmission Date: 20110219
  Serious: No
  Sender: FDA-Public Use
  Company Number: None

PATIENT
  Age: 29 Year
  Sex: Female
  Weight: 70.5 kg

DRUGS (1)
  1. NEOMYCIN AND POLYMXIN B SULFATES AND HYDROCORTISONE [Suspect]
     Indication: EAR INFECTION
     Dosage: 4 DROPS 4XD IN EAR
     Dates: start: 20100817, end: 20100820

REACTIONS (5)
  - AURICULAR SWELLING [None]
  - EAR PAIN [None]
  - ERYTHEMA [None]
  - HYPOACUSIS [None]
  - SKIN EXFOLIATION [None]
